FAERS Safety Report 6383703-1 (Version None)
Quarter: 2009Q4

REPORT INFORMATION
  Report Type: 
  Country: None (occurrence: None)
  Receive Date: 20091001
  Receipt Date: 20090921
  Transmission Date: 20100525
  Serious: Yes (Disabling, Other)
  Sender: FDA-Public Use
  Company Number: US-PFIZER INC-2009216831

PATIENT
  Sex: Male
  Weight: 88.435 kg

DRUGS (2)
  1. SUTENT [Suspect]
     Indication: METASTASES TO LUNG
     Dosage: 50 MG, 1X/DAY
     Route: 048
     Dates: start: 20090421
  2. SUTENT [Suspect]
     Indication: RENAL CELL CARCINOMA

REACTIONS (14)
  - AGEUSIA [None]
  - ARTHRALGIA [None]
  - DIARRHOEA [None]
  - DRY SKIN [None]
  - DYSURIA [None]
  - HAEMATOCHEZIA [None]
  - HAIR COLOUR CHANGES [None]
  - MYALGIA [None]
  - PALMAR-PLANTAR ERYTHRODYSAESTHESIA SYNDROME [None]
  - RASH [None]
  - SKIN EXFOLIATION [None]
  - STOMATITIS [None]
  - VOMITING [None]
  - YELLOW SKIN [None]
